FAERS Safety Report 6970735-5 (Version None)
Quarter: 2010Q3

REPORT INFORMATION
  Report Type: 
  Country: None (occurrence: None)
  Receive Date: 20100908
  Receipt Date: 20100901
  Transmission Date: 20110219
  Serious: Yes (Hospitalization)
  Sender: FDA-Public Use
  Company Number: A0773261A

PATIENT
  Age: 55 Year
  Sex: Male
  Weight: 77.3 kg

DRUGS (5)
  1. AVANDIA [Suspect]
     Indication: TYPE 2 DIABETES MELLITUS
     Dosage: 8MG PER DAY
     Route: 048
     Dates: start: 20030818, end: 20070510
  2. METFORMIN [Concomitant]
     Dates: start: 20000408
  3. BENAZEPRIL HYDROCHLORIDE [Concomitant]
  4. DIABETA [Concomitant]
     Dates: start: 20000428, end: 20041205
  5. GLYBURIDE [Concomitant]

REACTIONS (6)
  - ARTERIOSCLEROSIS [None]
  - CORONARY ARTERY DISEASE [None]
  - HYPERTENSION [None]
  - MYOCARDIAL INFARCTION [None]
  - PERIPHERAL VASCULAR DISORDER [None]
  - THROMBOSIS [None]
